FAERS Safety Report 14524438 (Version 14)
Quarter: 2019Q1

REPORT INFORMATION
  Report Type: Spontaneous
  Country: US (occurrence: US)
  Receive Date: 20180213
  Receipt Date: 20190201
  Transmission Date: 20190417
  Serious: Yes (Hospitalization, Other)
  Sender: FDA-Public Use
  Company Number: US-PFIZER INC-2018014716

PATIENT
  Age: 93 Year
  Sex: Female
  Weight: 49 kg

DRUGS (6)
  1. IBRANCE [Suspect]
     Active Substance: PALBOCICLIB
     Dosage: 75 MG, CYCLIC (DAYS 1-21 Q 28 DAYS)
     Route: 048
  2. IBRANCE [Suspect]
     Active Substance: PALBOCICLIB
     Indication: BREAST CANCER METASTATIC
     Dosage: 125 MG, CYCLIC  (ONCE DAILY, DAYS 1-21 DAYS, 7 DAYS OFF)
     Route: 048
     Dates: start: 20171219, end: 20180110
  3. IBRANCE [Suspect]
     Active Substance: PALBOCICLIB
     Dosage: 125 MG, CYCLIC (MONDAY, WEDNESDAY AND FRIDAY FOR 21 DAYS OUT OF 28 DAYS)
     Route: 048
     Dates: start: 20171220
  4. IBRANCE [Suspect]
     Active Substance: PALBOCICLIB
     Dosage: 75 MG, CYCLIC (DAYS 1-21 Q 28 DAYS)
     Route: 048
     Dates: start: 20171220
  5. IBRANCE [Suspect]
     Active Substance: PALBOCICLIB
     Dosage: 75 MG, UNK
     Route: 048
     Dates: start: 201802
  6. IBRANCE [Suspect]
     Active Substance: PALBOCICLIB
     Dosage: 75 MG, CYCLIC (DAYS 1-21 Q 28 DAYS)
     Route: 048

REACTIONS (22)
  - Alopecia [Unknown]
  - Asthenia [Unknown]
  - Dyspnoea [Unknown]
  - Musculoskeletal pain [Unknown]
  - Blood glucose abnormal [Unknown]
  - Osteoporosis [Unknown]
  - Hypotension [Not Recovered/Not Resolved]
  - Neoplasm progression [Unknown]
  - Arthralgia [Not Recovered/Not Resolved]
  - Peripheral swelling [Unknown]
  - Osteoarthritis [Unknown]
  - Cough [Unknown]
  - Fatigue [Not Recovered/Not Resolved]
  - Dizziness postural [Unknown]
  - Neutropenia [Unknown]
  - Product use issue [Unknown]
  - Decreased appetite [Unknown]
  - Joint swelling [Unknown]
  - Lung infection [Unknown]
  - Dyspnoea exertional [Unknown]
  - Full blood count decreased [Unknown]
  - Blood glucose increased [Unknown]

NARRATIVE: CASE EVENT DATE: 20171220
